FAERS Safety Report 4539970-X (Version None)
Quarter: 2004Q4

REPORT INFORMATION
  Report Type: 
  Country: None (occurrence: None)
  Receive Date: 20041223
  Receipt Date: 20041209
  Transmission Date: 20050328
  Serious: Yes (Death)
  Sender: FDA-Public Use
  Company Number: 2004AP05064

PATIENT
  Age: 62 Year
  Sex: Male

DRUGS (11)
  1. IRESSA [Suspect]
     Indication: LUNG ADENOCARCINOMA
     Dosage: 250 MG DAILY PO
     Route: 048
     Dates: start: 20040316, end: 20040814
  2. IRESSA [Suspect]
     Indication: NON-SMALL CELL LUNG CANCER
     Dosage: 250 MG DAILY PO
     Route: 048
     Dates: start: 20040316, end: 20040814
  3. IRESSA [Suspect]
     Indication: LUNG ADENOCARCINOMA
     Dosage: 250 MG DAILY PO
     Route: 048
     Dates: start: 20040831, end: 20040904
  4. IRESSA [Suspect]
     Indication: NON-SMALL CELL LUNG CANCER
     Dosage: 250 MG DAILY PO
     Route: 048
     Dates: start: 20040831, end: 20040904
  5. BASEN [Concomitant]
  6. VOLTAREN [Concomitant]
  7. CARBOPLATIN [Concomitant]
  8. PACLITAXEL [Concomitant]
  9. DOCETAXEL [Concomitant]
  10. GEMCITABINE [Concomitant]
  11. RADIATION THERAPY [Concomitant]

REACTIONS (9)
  - BACK PAIN [None]
  - CARCINOEMBRYONIC ANTIGEN INCREASED [None]
  - DISSEMINATED INTRAVASCULAR COAGULATION [None]
  - HEPATIC FAILURE [None]
  - HEPATIC FUNCTION ABNORMAL [None]
  - HEPATITIS [None]
  - METASTASES TO LIVER [None]
  - MULTI-ORGAN FAILURE [None]
  - PERFORMANCE STATUS DECREASED [None]
